FAERS Safety Report 19164004 (Version 1)
Quarter: 2021Q2

REPORT INFORMATION
  Report Type: Spontaneous
  Country: FR (occurrence: FR)
  Receive Date: 20210421
  Receipt Date: 20210421
  Transmission Date: 20210717
  Serious: Yes (Hospitalization)
  Sender: FDA-Public Use
  Company Number: FR-PFIZER INC-2021398176

PATIENT
  Age: 19 Year
  Sex: Female

DRUGS (3)
  1. LYRICA [Suspect]
     Active Substance: PREGABALIN
     Dosage: 16 DF, 1X/DAY
     Route: 048
  2. IXPRIM [Suspect]
     Active Substance: ACETAMINOPHEN\TRAMADOL HYDROCHLORIDE
     Indication: PAIN
     Dosage: 24 DF, 1X/DAY
     Route: 048
     Dates: start: 2009
  3. LYSANXIA [Suspect]
     Active Substance: PRAZEPAM
     Dosage: 40 MG, 1X/DAY
     Route: 048

REACTIONS (2)
  - Overdose [Unknown]
  - Drug use disorder [Not Recovered/Not Resolved]

NARRATIVE: CASE EVENT DATE: 2013
